FAERS Safety Report 6551150-5 (Version None)
Quarter: 2010Q1

REPORT INFORMATION
  Report Type: 
  Country: None (occurrence: None)
  Receive Date: 20100121
  Receipt Date: 20100112
  Transmission Date: 20100710
  Serious: Yes (Hospitalization)
  Sender: FDA-Public Use
  Company Number: TIF2010A00003

PATIENT
  Age: 42 Year
  Sex: Male

DRUGS (2)
  1. LANSOPRAZOLE [Suspect]
     Indication: HIATUS HERNIA
     Dosage: 1 DF ORAL
     Route: 048
     Dates: start: 20090225, end: 20090228
  2. CARDIRENE (ACETYLSALICYLATE LYSINE) [Concomitant]

REACTIONS (6)
  - DYSPHAGIA [None]
  - ERYTHEMA [None]
  - FLUSHING [None]
  - PERIORBITAL OEDEMA [None]
  - PRURITUS GENERALISED [None]
  - THROAT TIGHTNESS [None]
